FAERS Safety Report 6404068-2 (Version None)
Quarter: 2009Q4

REPORT INFORMATION
  Report Type: 
  Country: None (occurrence: None)
  Receive Date: 20091016
  Receipt Date: 20090908
  Transmission Date: 20100525
  Serious: No
  Sender: FDA-Public Use
  Company Number: FR-ALEXION-A200900753

PATIENT

DRUGS (5)
  1. SOLIRIS [Suspect]
     Dosage: 200 MG, SINGLE
     Route: 042
     Dates: start: 20090908, end: 20090908
  2. ELOXATIN [Concomitant]
     Indication: COLON CANCER
  3. SOLU-MEDROL [Concomitant]
     Indication: COLON CANCER
  4. ZOPHREN                            /00955302/ [Concomitant]
     Indication: COLON CANCER
  5. MEDIAFOLINE [Concomitant]

REACTIONS (1)
  - WRONG DRUG ADMINISTERED [None]
